FAERS Safety Report 8588668-X (Version None)
Quarter: 2012Q3

REPORT INFORMATION
  Report Type: 
  Country: None (occurrence: None)
  Receive Date: 20120813
  Receipt Date: 20120801
  Transmission Date: 20120928
  Serious: Yes (Hospitalization, Other)
  Sender: FDA-Public Use
  Company Number: US-BAYER-2012-079253

PATIENT
  Age: 41 Year
  Sex: Female

DRUGS (3)
  1. YAZ [Suspect]
     Dosage: UNK
     Dates: start: 20070909, end: 20081222
  2. FEXOFENADINE HCL [Concomitant]
     Dosage: 180 MG, UNK
     Dates: start: 20080402, end: 20080716
  3. DIOVAN HCT [Concomitant]
     Dosage: 80-12.5 MG
     Dates: start: 20080404

REACTIONS (2)
  - DEEP VEIN THROMBOSIS [None]
  - THROMBOPHLEBITIS SUPERFICIAL [None]
